FAERS Safety Report 16117271 (Version 1)
Quarter: 2019Q1

REPORT INFORMATION
  Report Type: Spontaneous
  Country: US (occurrence: US)
  Receive Date: 20190221
  Receipt Date: 20190221
  Transmission Date: 20190418
  Serious: Yes (Hospitalization)
  Sender: FDA-Public Use
  Company Number: None

PATIENT
  Age: 83 Year
  Sex: Male
  Weight: 64.5 kg

DRUGS (3)
  1. DASATINIB 50 MG [Suspect]
     Active Substance: DASATINIB
     Indication: NON-SMALL CELL LUNG CANCER
     Route: 048
     Dates: start: 20161207
  2. OSIMERTINIB 80 MG [Suspect]
     Active Substance: OSIMERTINIB
     Indication: NON-SMALL CELL LUNG CANCER
     Route: 048
     Dates: start: 20161207
  3. SEROSANGUINOUS FLUID [Concomitant]

REACTIONS (7)
  - Chest pain [None]
  - Dyspnoea exertional [None]
  - Dyspnoea [None]
  - Cough [None]
  - Wheezing [None]
  - Pleural effusion [None]
  - Pyrexia [None]

NARRATIVE: CASE EVENT DATE: 20190215
